FAERS Safety Report 12757924 (Version 1)
Quarter: 2016Q3

REPORT INFORMATION
  Report Type: Spontaneous
  Country: US (occurrence: US)
  Receive Date: 20160916
  Receipt Date: 20160916
  Transmission Date: 20161109
  Serious: Yes (Hospitalization)
  Sender: FDA-Public Use
  Company Number: None

PATIENT
  Age: 67 Year
  Sex: Male
  Weight: 103.7 kg

DRUGS (2)
  1. CASODEX [Suspect]
     Active Substance: BICALUTAMIDE
     Dates: end: 20160805
  2. LEUPROLIDE ACETATE. [Suspect]
     Active Substance: LEUPROLIDE ACETATE
     Dates: end: 20160727

REACTIONS (7)
  - Heart rate decreased [None]
  - Bile duct obstruction [None]
  - Cholelithiasis [None]
  - Blood urea increased [None]
  - Cholecystitis acute [None]
  - Hepatic steatosis [None]
  - Blood pressure diastolic decreased [None]

NARRATIVE: CASE EVENT DATE: 20160805
